FAERS Safety Report 4488461-3 (Version None)
Quarter: 2004Q4

REPORT INFORMATION
  Report Type: 
  Country: None (occurrence: None)
  Receive Date: 20041026
  Receipt Date: 20041016
  Transmission Date: 20050328
  Serious: Yes (Other)
  Sender: FDA-Public Use
  Company Number: 2004239550US

PATIENT
  Age: 29 Year
  Sex: Female
  Weight: 90.7 kg

DRUGS (1)
  1. DEPO-PROVERA [Suspect]
     Dosage: 150 MG, FIRST INJECTION, INTRAMUSCULAR
     Route: 030
     Dates: start: 20040817, end: 17200808

REACTIONS (8)
  - ABORTION SPONTANEOUS [None]
  - DRUG EXPOSURE DURING PREGNANCY [None]
  - DYSMENORRHOEA [None]
  - HAEMORRHAGE [None]
  - INCREASED APPETITE [None]
  - MENORRHAGIA [None]
  - PREGNANCY WITH INJECTABLE CONTRACEPTIVE [None]
  - WEIGHT INCREASED [None]
